FAERS Safety Report 5279310-4 (Version None)
Quarter: 2007Q1

REPORT INFORMATION
  Report Type: 
  Country: None (occurrence: None)
  Receive Date: 20070328
  Receipt Date: 20060512
  Transmission Date: 20070707
  Serious: No
  Sender: FDA-Public Use
  Company Number: US-AMGEN-US178605

PATIENT
  Sex: Female
  Weight: 81.3 kg

DRUGS (10)
  1. NEULASTA [Suspect]
     Indication: CHEMOTHERAPY
     Route: 058
     Dates: start: 20060504, end: 20060504
  2. ALOXI [Concomitant]
     Route: 042
     Dates: start: 20060502
  3. DECADRON [Concomitant]
     Route: 042
     Dates: start: 20060502
  4. ATIVAN [Concomitant]
     Route: 042
     Dates: start: 20060502
  5. CYTOXAN [Concomitant]
     Route: 042
     Dates: start: 20060502
  6. FLUOROURACIL [Concomitant]
     Route: 040
     Dates: start: 20060502
  7. HEPARIN [Concomitant]
     Route: 040
     Dates: start: 20060502
  8. ARANESP [Concomitant]
     Route: 065
     Dates: start: 20060502
  9. EMEND [Concomitant]
     Route: 065
     Dates: start: 20060502
  10. DEXAMETHASONE [Concomitant]
     Route: 065
     Dates: start: 20060502

REACTIONS (2)
  - DYSPNOEA [None]
  - OCULAR HYPERAEMIA [None]
